FAERS Safety Report 16202791 (Version 2)
Quarter: 2019Q2

REPORT INFORMATION
  Report Type: Spontaneous
  Country: KR (occurrence: KR)
  Receive Date: 20190416
  Receipt Date: 20190423
  Transmission Date: 20190711
  Serious: Yes (Other)
  Sender: FDA-Public Use
  Company Number: KR-009507513-1904KOR004553

PATIENT
  Age: 55 Year
  Sex: Male

DRUGS (12)
  1. BROMOCRIPTINE MESYLATE [Suspect]
     Active Substance: BROMOCRIPTINE MESYLATE
     Indication: PHYSICAL DISABILITY
  2. CARBIDOPA (+) LEVODOPA [Suspect]
     Active Substance: CARBIDOPA\LEVODOPA
     Indication: MENTAL IMPAIRMENT
     Dosage: INITIATED AT A LOW DOSAGE AND GRADUALLY INCREASED TO 75/750 MG, DAILY ON 60TH DAY OF ADMISSION
     Route: 048
  3. METHYLPHENIDATE. [Suspect]
     Active Substance: METHYLPHENIDATE
     Indication: MENTAL IMPAIRMENT
     Dosage: INITIATED AT A LOW DOSAGE AND GRADUALLY INCREASED TO 7.5 MG, DAILY ON 60TH DAY OF ADMISSION
  4. ROPINIROLE. [Suspect]
     Active Substance: ROPINIROLE
     Indication: PHYSICAL DISABILITY
  5. TIANEPTINE SODIUM [Suspect]
     Active Substance: TIANEPTINE SODIUM
     Indication: MENTAL IMPAIRMENT
     Dosage: INITIATED AT A LOW DOSAGE AND GRADUALLY INCREASED TO 37.5 MG, DAILY ON 60TH DAY OF ADMISSION
  6. METHYLPHENIDATE. [Suspect]
     Active Substance: METHYLPHENIDATE
     Indication: PHYSICAL DISABILITY
  7. CARBIDOPA (+) LEVODOPA [Suspect]
     Active Substance: CARBIDOPA\LEVODOPA
     Indication: PHYSICAL DISABILITY
  8. VENLAFAXINE HYDROCHLORIDE. [Suspect]
     Active Substance: VENLAFAXINE HYDROCHLORIDE
     Indication: PHYSICAL DISABILITY
  9. ROPINIROLE. [Suspect]
     Active Substance: ROPINIROLE
     Indication: MENTAL IMPAIRMENT
     Dosage: INITIATED AT A LOW DOSAGE AND GRADUALLY INCREASED TO 1.5 MG, DAILY ON 60TH DAY OF ADMISSION
  10. BROMOCRIPTINE MESYLATE [Suspect]
     Active Substance: BROMOCRIPTINE MESYLATE
     Indication: MENTAL IMPAIRMENT
     Dosage: INITIATED AT A LOW DOSAGE AND GRADUALLY INCREASED TO 7.5 MG, DAILY ON 60TH DAY OF ADMISSION
  11. VENLAFAXINE HYDROCHLORIDE. [Suspect]
     Active Substance: VENLAFAXINE HYDROCHLORIDE
     Indication: MENTAL IMPAIRMENT
     Dosage: INITIATED AT A LOW DOSAGE AND GRADUALLY INCREASED TO 75MG, DAILY ON 60TH DAY OF ADMISSION
  12. TIANEPTINE SODIUM [Suspect]
     Active Substance: TIANEPTINE SODIUM
     Indication: PHYSICAL DISABILITY

REACTIONS (3)
  - Stress cardiomyopathy [Recovered/Resolved]
  - Serotonin syndrome [Recovered/Resolved]
  - Off label use [Unknown]
